FAERS Safety Report 4596405-9 (Version None)
Quarter: 2005Q1

REPORT INFORMATION
  Report Type: 
  Country: None (occurrence: None)
  Receive Date: 20050228
  Receipt Date: 20050224
  Transmission Date: 20050727
  Serious: Yes (Hospitalization)
  Sender: FDA-Public Use
  Company Number: A001-319-733

PATIENT
  Age: 76 Year
  Sex: Female
  Weight: 75 kg

DRUGS (28)
  1. CARTIA XT [Suspect]
     Indication: HYPERTENSION
     Dosage: 300 MG, ORAL
     Route: 048
     Dates: start: 20040125
  2. PLACEBO [Suspect]
     Indication: HYPERTENSION
     Dosage: PLACEBO, 1 IN 1 D, ORAL
     Route: 048
     Dates: start: 20040929, end: 20041117
  3. METOPROLOL TARTRATE [Suspect]
     Indication: CARDIOMYOPATHY
     Dosage: 200 MG, 2 IN 1 D, ORAL
     Route: 048
     Dates: start: 20000417, end: 20041204
  4. ALBUTEROL [Concomitant]
  5. ENTERIC ASPIRIN (ACETYLSALICYLIC ACID) [Concomitant]
  6. CALCIUM (CALCIUM) [Concomitant]
  7. CARBAMAZEPINE [Concomitant]
  8. DIGOXIN [Concomitant]
  9. POTASSIUM CHLORIDE [Concomitant]
  10. FUROSEMIDE [Concomitant]
  11. MULTIVITAMIN [Concomitant]
  12. NITRO-DUR [Concomitant]
  13. PROTONIX [Concomitant]
  14. NEURONTIN [Concomitant]
  15. EXTRA STRENGTH TYLENOL [Concomitant]
  16. SEPTRA [Concomitant]
  17. FERROUS SULFATE TAB [Concomitant]
  18. CALCIUM (CALCIUM) [Concomitant]
  19. VITAMIN D [Concomitant]
  20. CALCITONIN (CALCITONIN) [Concomitant]
  21. REGLAN [Concomitant]
  22. PHENERGAN [Concomitant]
  23. TEGRETOL [Concomitant]
  24. CARDIZEM [Concomitant]
  25. ROCEPHIN [Concomitant]
  26. ZITHROMAX [Concomitant]
  27. ATROVENT [Concomitant]
  28. COMBIVENT [Concomitant]

REACTIONS (8)
  - ANKLE FRACTURE [None]
  - CARDIAC FAILURE CONGESTIVE [None]
  - CHRONIC OBSTRUCTIVE AIRWAYS DISEASE EXACERBATED [None]
  - CONDITION AGGRAVATED [None]
  - CONFUSIONAL STATE [None]
  - PULMONARY HYPERTENSION [None]
  - SPINAL COMPRESSION FRACTURE [None]
  - URINARY TRACT INFECTION [None]
